FAERS Safety Report 8270358-4 (Version None)
Quarter: 2012Q2

REPORT INFORMATION
  Report Type: 
  Country: None (occurrence: None)
  Receive Date: 20120410
  Receipt Date: 20120330
  Transmission Date: 20120825
  Serious: Yes (Hospitalization, Other)
  Sender: FDA-Public Use
  Company Number: US-SANOFI-AVENTIS-2012SA022568

PATIENT
  Age: 67 Year
  Sex: Male

DRUGS (3)
  1. DIGOXIN [Suspect]
     Route: 065
  2. MULTAQ [Suspect]
     Indication: ATRIAL FIBRILLATION
     Route: 048
     Dates: start: 20120306
  3. CARDIZEM [Suspect]
     Route: 065

REACTIONS (3)
  - SYNCOPE [None]
  - ATRIAL FIBRILLATION [None]
  - DRUG INEFFECTIVE [None]
